FAERS Safety Report 12192610 (Version 1)
Quarter: 2016Q1

REPORT INFORMATION
  Report Type: Other
  Country: US (occurrence: US)
  Receive Date: 20160318
  Receipt Date: 20160318
  Transmission Date: 20160526
  Serious: Yes (Other)
  Sender: FDA-Public Use
  Company Number: US-EMD SERONO-8072749

PATIENT
  Age: 60 Year
  Sex: Female

DRUGS (1)
  1. CHORIOGONADOTROPIN ALFA [Suspect]
     Active Substance: CHORIOGONADOTROPIN ALFA
     Indication: WEIGHT DECREASED
     Dosage: RANGING FROM 175 TO 200 IU DAILY
     Route: 058

REACTIONS (5)
  - Hypothyroidism [Unknown]
  - Goitre [Unknown]
  - Off label use [Recovered/Resolved]
  - Hyperthyroidism [Not Recovered/Not Resolved]
  - Thyroiditis subacute [Recovering/Resolving]
